FAERS Safety Report 6108456-3 (Version None)
Quarter: 2009Q1

REPORT INFORMATION
  Report Type: 
  Country: None (occurrence: None)
  Receive Date: 20090309
  Receipt Date: 20090224
  Transmission Date: 20090719
  Serious: Yes (Death, Life-Threatening, Other)
  Sender: FDA-Public Use
  Company Number: US-ROXANE LABORATORIES, INC.-2008-BP-12201RO

PATIENT
  Sex: Male
  Weight: 94 kg

DRUGS (28)
  1. SODIUM POLYSTYRENE SULFONATE [Suspect]
     Indication: BLOOD POTASSIUM INCREASED
     Route: 048
     Dates: start: 20080709, end: 20080709
  2. SODIUM POLYSTYRENE SULFONATE [Suspect]
     Dates: start: 20080709, end: 20080709
  3. SODIUM POLYSTYRENE SULFONATE [Suspect]
     Dates: start: 20080709, end: 20080709
  4. STEROID [Concomitant]
  5. ALBUTEROL SULFATE [Concomitant]
     Indication: WHEEZING
     Dates: start: 20080703, end: 20080804
  6. IPRATROPIUM BROMIDE [Concomitant]
     Indication: WHEEZING
     Dates: start: 20080703, end: 20080804
  7. VANCOMYCIN [Concomitant]
     Dates: start: 20080706, end: 20080803
  8. AZTREONAM [Concomitant]
     Dates: start: 20080703, end: 20080711
  9. PANTOPRAZOL SODIUM [Concomitant]
     Dosage: 40MG
     Route: 042
     Dates: start: 20080703, end: 20080804
  10. LEVOFLOXACIN [Concomitant]
     Dates: start: 20080703, end: 20080802
  11. ASPIRIN [Concomitant]
     Dosage: 81MG
     Dates: start: 20080703, end: 20080802
  12. SIMVASTATIN [Concomitant]
     Dosage: 10MG
     Dates: start: 20080703, end: 20080802
  13. LEVOTHYROXINE SODIUM [Concomitant]
     Dosage: 75MCG
     Route: 048
     Dates: start: 20080703, end: 20080802
  14. DORZOLAMIDE HYDROCHLORIDE [Concomitant]
     Route: 031
     Dates: start: 20080703, end: 20080804
  15. ACETAMINOPHEN [Concomitant]
     Indication: PYREXIA
     Dates: start: 20080703, end: 20080801
  16. PROPOFOL [Concomitant]
     Indication: SEDATION
     Route: 042
     Dates: start: 20080704, end: 20080803
  17. METHYLPREDNISOLONE 4MG TAB [Concomitant]
     Route: 042
     Dates: start: 20080709, end: 20080728
  18. HUMULIN R [Concomitant]
     Route: 058
     Dates: start: 20080704, end: 20080804
  19. HUMULIN R [Concomitant]
     Route: 042
     Dates: start: 20080709
  20. MORPHINE SULFATE [Concomitant]
     Indication: PAIN
     Route: 042
     Dates: start: 20080705, end: 20080804
  21. MORPHINE SULFATE [Concomitant]
     Route: 042
     Dates: start: 20080705, end: 20080804
  22. HEPARIN SODIUM INJECTION [Concomitant]
     Indication: THROMBOSIS PROPHYLAXIS
     Route: 058
     Dates: start: 20080705, end: 20080722
  23. CALCIUM GLUCONATE [Concomitant]
     Dates: start: 20080709, end: 20080803
  24. HYDRALAZINE HCL [Concomitant]
     Route: 042
     Dates: start: 20080709, end: 20080721
  25. OXYGEN [Concomitant]
     Dates: start: 20080703, end: 20080804
  26. ENOXAPARIN SODIUM [Concomitant]
     Dosage: 40MG
     Route: 058
     Dates: start: 20080703, end: 20080802
  27. DOPAMINE HCL [Concomitant]
     Indication: SEPSIS
     Route: 042
     Dates: start: 20080704, end: 20080803
  28. ALBUMIN (HUMAN) [Concomitant]
     Indication: BLOOD PRESSURE MANAGEMENT
     Route: 042
     Dates: start: 20080704, end: 20080803

REACTIONS (45)
  - ABDOMINAL DISTENSION [None]
  - ACUTE RESPIRATORY DISTRESS SYNDROME [None]
  - ALVEOLITIS [None]
  - ANAEMIA [None]
  - ASCITES [None]
  - ATRIAL FIBRILLATION [None]
  - ATRIAL FLUTTER [None]
  - AZOTAEMIA [None]
  - BACTERAEMIA [None]
  - BACTERIAL SEPSIS [None]
  - BLOOD POTASSIUM INCREASED [None]
  - BLOOD UREA INCREASED [None]
  - CANDIDIASIS [None]
  - CHOLECYSTITIS [None]
  - COAGULOPATHY [None]
  - CONSTIPATION [None]
  - DEMENTIA [None]
  - EMPHYSEMA [None]
  - FUNGAL INFECTION [None]
  - GALLBLADDER ENLARGEMENT [None]
  - GENERAL PHYSICAL HEALTH DETERIORATION [None]
  - GENERALISED OEDEMA [None]
  - GENITAL RASH [None]
  - HYPOXIA [None]
  - ILEUS [None]
  - INTERSTITIAL LUNG DISEASE [None]
  - LEUKOCYTOSIS [None]
  - LIVER DISORDER [None]
  - MENTAL STATUS CHANGES [None]
  - MULTI-ORGAN FAILURE [None]
  - OEDEMA PERIPHERAL [None]
  - PHLEBOLITH [None]
  - PNEUMOTHORAX [None]
  - PUPILLARY LIGHT REFLEX TESTS ABNORMAL [None]
  - PYREXIA [None]
  - RASH [None]
  - RENAL FAILURE ACUTE [None]
  - RESPIRATORY FAILURE [None]
  - RHABDOMYOLYSIS [None]
  - SCOLIOSIS [None]
  - SEPTIC SHOCK [None]
  - SINUS BRADYCARDIA [None]
  - THROMBOTIC THROMBOCYTOPENIC PURPURA [None]
  - URINE OUTPUT DECREASED [None]
  - VENTRICULAR TACHYCARDIA [None]
